FAERS Safety Report 10621526 (Version 1)
Quarter: 2014Q4

REPORT INFORMATION
  Report Type: Spontaneous
  Country: US (occurrence: None)
  Receive Date: 20141128
  Receipt Date: 20141128
  Transmission Date: 20150529
  Serious: Yes (Other)
  Sender: FDA-Public Use
  Company Number: ADR-2008-5042

PATIENT
  Age: 44 Year
  Sex: Female

DRUGS (1)
  1. LIORESAL [Suspect]
     Active Substance: BACLOFEN
     Indication: MUSCLE SPASTICITY

REACTIONS (7)
  - Mobility decreased [None]
  - Constipation [None]
  - Musculoskeletal stiffness [None]
  - No therapeutic response [None]
  - Catheter site swelling [None]
  - Muscle spasticity [None]
  - Pain [None]

NARRATIVE: CASE EVENT DATE: 20080219
